FAERS Safety Report 9639933 (Version 2)
Quarter: 2014Q1

REPORT INFORMATION
  Report Type: Spontaneous
  Country: DE (occurrence: DE)
  Receive Date: 20131023
  Receipt Date: 20140117
  Transmission Date: 20141002
  Serious: Yes (Other)
  Sender: FDA-Public Use
  Company Number: DE-UCBSA-101027

PATIENT
  Age: 72 Year
  Sex: Male

DRUGS (11)
  1. NEUPRO [Suspect]
     Indication: RESTLESS LEGS SYNDROME
     Route: 062
     Dates: start: 20120728, end: 20131007
  2. ASS [Concomitant]
     Dosage: 100 MG
  3. BRILIQUE [Concomitant]
     Dosage: 90
  4. CARVEDILOL [Concomitant]
     Dosage: 25
  5. DELIX [Concomitant]
     Dosage: 5
  6. PENTALONG [Concomitant]
     Dosage: 50
  7. HCT [Concomitant]
     Dosage: 25; 1/2-0-0 PER DAY
  8. AMLODIPIN [Concomitant]
     Dosage: 5
  9. PANTOZOL [Concomitant]
     Dosage: 40
  10. FINASTERID [Concomitant]
     Dosage: 5
  11. ALNA [Concomitant]
     Dosage: 0.4

REACTIONS (1)
  - Macular degeneration [Not Recovered/Not Resolved]
